APPROVED DRUG PRODUCT: DULOXETINE HYDROCHLORIDE
Active Ingredient: DULOXETINE HYDROCHLORIDE
Strength: EQ 40MG BASE
Dosage Form/Route: CAPSULE, DELAYED REL PELLETS;ORAL
Application: A090739 | Product #004 | TE Code: AB
Applicant: ZYDUS HEALTHCARE USA LLC
Approved: Apr 18, 2023 | RLD: No | RS: No | Type: RX